FAERS Safety Report 8804767 (Version 1)
Quarter: 2012Q4

REPORT INFORMATION
  Report Type: 
  Country: US (occurrence: US)
  Receive Date: 20120924
  Receipt Date: 20120924
  Transmission Date: 20130627
  Serious: No
  Sender: FDA-Public Use
  Company Number: US-009507513-1209USA005416

PATIENT
  Age: 58 Year
  Sex: Male
  Weight: 72.56 kg

DRUGS (2)
  1. VICTRELIS [Suspect]
     Indication: HEPATITIS C
     Dosage: 4 CAPSULES BY MOUTH EVERY 8 HOURS FOR 32 WEEKS
     Route: 048
     Dates: start: 20120510
  2. PROCRIT [Concomitant]
     Dosage: UNK

REACTIONS (1)
  - Swelling [Unknown]
